FAERS Safety Report 5679403-3 (Version None)
Quarter: 2008Q1

REPORT INFORMATION
  Report Type: 
  Country: None (occurrence: None)
  Receive Date: 20080325
  Receipt Date: 20080317
  Transmission Date: 20080703
  Serious: Yes (Other)
  Sender: FDA-Public Use
  Company Number: US-PFIZER INC-2008013526

PATIENT
  Sex: Female
  Weight: 68 kg

DRUGS (8)
  1. XALATAN [Suspect]
     Indication: GLAUCOMA
  2. PREVACID [Concomitant]
  3. NORVASC [Concomitant]
  4. ACCURETIC [Concomitant]
  5. TOPROL [Concomitant]
  6. ZOCOR [Concomitant]
  7. SYNTHROID [Concomitant]
  8. ASPIRIN [Concomitant]

REACTIONS (4)
  - CATARACT OPERATION [None]
  - DRUG ADMINISTRATION ERROR [None]
  - INCORRECT ROUTE OF DRUG ADMINISTRATION [None]
  - WRONG TECHNIQUE IN DRUG USAGE PROCESS [None]
